FAERS Safety Report 9856960 (Version 1)
Quarter: 2014Q1

REPORT INFORMATION
  Report Type: Report from Study
  Country: US (occurrence: US)
  Receive Date: 20140130
  Receipt Date: 20140130
  Transmission Date: 20141002
  Serious: Yes (Death, Other)
  Sender: FDA-Public Use
  Company Number: PHEH2014US002118

PATIENT
  Age: 90 Year
  Sex: Male

DRUGS (6)
  1. GLEEVEC [Suspect]
     Indication: CHRONIC LYMPHOCYTIC LEUKAEMIA
     Dosage: 400 MG, THREE TIMES PER WEEK
     Route: 048
     Dates: start: 20100515, end: 20140123
  2. NAMENDA [Concomitant]
     Dosage: UNK UKN, UNK
  3. PROTONIX [Concomitant]
     Dosage: UNK UKN, UNK
  4. PLAVIX [Concomitant]
     Dosage: UNK UKN, UNK
  5. ALLOPURINOL [Concomitant]
     Dosage: UNK UKN, UNK
  6. SIMVASTATIN [Concomitant]
     Dosage: UNK UKN, UNK

REACTIONS (2)
  - Death [Fatal]
  - Cardiac arrest [Recovered/Resolved]
